FAERS Safety Report 25943954 (Version 3)
Quarter: 2025Q4

REPORT INFORMATION
  Report Type: Spontaneous
  Country: US (occurrence: US)
  Receive Date: 20251021
  Receipt Date: 20251120
  Transmission Date: 20260117
  Serious: No
  Sender: NOVARTIS
  Company Number: US-002147023-NVSC2025US158997

PATIENT
  Sex: Female

DRUGS (1)
  1. LEQVIO [Suspect]
     Active Substance: INCLISIRAN SODIUM
     Indication: Product used for unknown indication
     Dosage: 284 MG ( 0, 3, AND 6 MONTHS, BELIEVE THIS WAS THEIR 3RD INJECTION OF LEQVIO)
     Route: 065
     Dates: start: 20251003

REACTIONS (1)
  - Injection site reaction [Not Recovered/Not Resolved]
